FAERS Safety Report 9478833 (Version 1)
Quarter: 2013Q3

REPORT INFORMATION
  Report Type: Report from Study
  Country: US (occurrence: US)
  Receive Date: 20130827
  Receipt Date: 20130827
  Transmission Date: 20140515
  Serious: Yes (Hospitalization)
  Sender: FDA-Public Use
  Company Number: US-ABBOTT-13P-163-1135310-00

PATIENT
  Age: 53 Year
  Sex: Female
  Weight: 62.2 kg

DRUGS (3)
  1. HUMIRA [Suspect]
     Indication: RHEUMATOID ARTHRITIS
     Dates: start: 2008, end: 2012
  2. HUMIRA [Suspect]
     Dosage: ONCE EVERY 3 TO 4 WEEKS
     Dates: start: 2012
  3. IBUPROFEN [Concomitant]
     Indication: PRODUCT USED FOR UNKNOWN INDICATION

REACTIONS (21)
  - Renal failure [Not Recovered/Not Resolved]
  - Renal failure [Recovered/Resolved]
  - Kidney infection [Recovered/Resolved]
  - Injection site pain [Not Recovered/Not Resolved]
  - Injection site haemorrhage [Recovered/Resolved]
  - Injection site swelling [Recovering/Resolving]
  - Injection site bruising [Recovering/Resolving]
  - Injection site pain [Not Recovered/Not Resolved]
  - Eye infection viral [Recovered/Resolved]
  - Arthritis [Not Recovered/Not Resolved]
  - Arthritis [Not Recovered/Not Resolved]
  - Eczema [Unknown]
  - Otorrhoea [Recovered/Resolved]
  - Ear pruritus [Recovered/Resolved]
  - Tenderness [Recovered/Resolved]
  - Swelling face [Recovered/Resolved]
  - Feeling hot [Recovered/Resolved]
  - Erythema [Recovered/Resolved]
  - Eye discharge [Recovered/Resolved]
  - Skin lesion [Unknown]
  - Eye disorder [Unknown]
